FAERS Safety Report 6970000-6 (Version None)
Quarter: 2010Q3

REPORT INFORMATION
  Report Type: 
  Country: None (occurrence: None)
  Receive Date: 20100908
  Receipt Date: 20100825
  Transmission Date: 20110219
  Serious: Yes (Hospitalization)
  Sender: FDA-Public Use
  Company Number: SE-ELI_LILLY_AND_COMPANY-SE201008007352

PATIENT
  Sex: Female
  Weight: 75.4 kg

DRUGS (4)
  1. INSULIN GLARGINE [Suspect]
     Indication: TYPE 2 DIABETES MELLITUS
     Dosage: 84 U, EACH EVENING
  2. INSULIN GLARGINE [Suspect]
     Dosage: 56 U, EACH EVENING
  3. METFORMIN [Suspect]
     Indication: TYPE 2 DIABETES MELLITUS
     Dosage: 1700 MG, DAILY (1/D)
     Route: 048
  4. LISPRO REGLISPRO [Suspect]
     Indication: TYPE 2 DIABETES MELLITUS
     Dosage: 40 U, 3/D

REACTIONS (1)
  - VAGINAL HAEMORRHAGE [None]
